FAERS Safety Report 14543423 (Version 2)
Quarter: 2018Q1

REPORT INFORMATION
  Report Type: Report from Study
  Country: US (occurrence: US)
  Receive Date: 20180216
  Receipt Date: 20180309
  Transmission Date: 20180509
  Serious: Yes (Hospitalization, Other)
  Sender: FDA-Public Use
  Company Number: US-GILEAD-2018-0321367

PATIENT
  Age: 64 Year
  Sex: Female

DRUGS (1)
  1. RANOLAZINE. [Suspect]
     Active Substance: RANOLAZINE
     Indication: ANGINA PECTORIS
     Dosage: 1000 MG, UNK
     Route: 048

REACTIONS (4)
  - Musculoskeletal pain [Unknown]
  - Drug dose omission [Not Recovered/Not Resolved]
  - Hepatic cirrhosis [Unknown]
  - Ill-defined disorder [Not Recovered/Not Resolved]
